FAERS Safety Report 24829217 (Version 1)
Quarter: 2025Q1

REPORT INFORMATION
  Report Type: Report from Study
  Country: CZ (occurrence: CZ)
  Receive Date: 20250110
  Receipt Date: 20250110
  Transmission Date: 20250409
  Serious: Yes (Other)
  Sender: UCB
  Company Number: CZ-UCBSA-2025001216

PATIENT
  Age: 60 Year
  Sex: Male

DRUGS (1)
  1. CERTOLIZUMAB PEGOL [Suspect]
     Active Substance: CERTOLIZUMAB PEGOL
     Indication: Product used for unknown indication
     Dosage: 200 MILLIGRAM, EV 2 WEEKS(QOW)
     Dates: start: 20240418

REACTIONS (1)
  - Histoplasmosis [Recovered/Resolved]

NARRATIVE: CASE EVENT DATE: 20241127
